FAERS Safety Report 16892123 (Version 1)
Quarter: 2019Q4

REPORT INFORMATION
  Report Type: Spontaneous
  Country: US (occurrence: US)
  Receive Date: 20191007
  Receipt Date: 20191007
  Transmission Date: 20200122
  Serious: Yes (Other)
  Sender: FDA-Public Use
  Company Number: US-MYLANLABS-2019M1093166

PATIENT
  Age: 55 Year
  Sex: Female

DRUGS (4)
  1. LITHIUM. [Suspect]
     Active Substance: LITHIUM
     Dosage: DOSE WAS DECREASED TO 300MG...
     Route: 065
  2. LAMOTRIGINE. [Concomitant]
     Active Substance: LAMOTRIGINE
     Indication: BIPOLAR DISORDER
     Route: 065
  3. LEVOTHYROXINE. [Concomitant]
     Active Substance: LEVOTHYROXINE
     Indication: HYPOTHYROIDISM
     Route: 065
  4. LITHIUM. [Suspect]
     Active Substance: LITHIUM
     Indication: BIPOLAR DISORDER
     Dosage: 600 MILLIGRAM
     Route: 065

REACTIONS (6)
  - Chronic kidney disease [Unknown]
  - Nephrogenic diabetes insipidus [Unknown]
  - Hypercalcaemia [Recovered/Resolved]
  - Parathyroid tumour benign [Recovered/Resolved]
  - Hyperparathyroidism [Recovered/Resolved]
  - Hypothyroidism [Unknown]
